FAERS Safety Report 24357332 (Version 1)
Quarter: 2024Q3

REPORT INFORMATION
  Report Type: Spontaneous
  Country: US (occurrence: None)
  Receive Date: 20240923
  Receipt Date: 20240923
  Transmission Date: 20241017
  Serious: Yes (Other)
  Sender: Public
  Company Number: None

PATIENT
  Age: 54 Year
  Sex: Female

DRUGS (11)
  1. FLECAINIDE [Suspect]
     Active Substance: FLECAINIDE
     Indication: Atrial fibrillation
     Dosage: 50 MG TWICE A DAY ORAL
     Route: 048
     Dates: start: 20240919
  2. XARELTO [Concomitant]
     Active Substance: RIVAROXABAN
     Dates: start: 20240919
  3. DOXYCYCLINE [Concomitant]
     Active Substance: DOXYCYCLINE\DOXYCYCLINE HYCLATE
     Dates: start: 20240919
  4. REPATHA [Concomitant]
     Active Substance: EVOLOCUMAB
     Dates: start: 20240220
  5. PREGABALIN [Concomitant]
     Active Substance: PREGABALIN
     Dates: start: 20190820
  6. PREGABALIN [Concomitant]
     Active Substance: PREGABALIN
     Dates: start: 20190918
  7. DIAZEPAM [Concomitant]
     Active Substance: DIAZEPAM
     Dates: start: 20230331
  8. CELECOXIB [Concomitant]
     Active Substance: CELECOXIB
     Dates: start: 20181215
  9. SYNTHROID [Concomitant]
     Active Substance: LEVOTHYROXINE SODIUM
     Dates: start: 20220615
  10. PANTOPRAZOLE SODIUM [Concomitant]
     Active Substance: PANTOPRAZOLE SODIUM
     Dates: start: 20200124
  11. mounjaro 12.5 [Concomitant]
     Dates: start: 20240401

REACTIONS (3)
  - Product dispensing error [None]
  - Incorrect dose administered [None]
  - Transcription medication error [None]

NARRATIVE: CASE EVENT DATE: 20240919
